FAERS Safety Report 13703510 (Version 2)
Quarter: 2017Q3

REPORT INFORMATION
  Report Type: Spontaneous
  Country: US (occurrence: US)
  Receive Date: 20170629
  Receipt Date: 20170726
  Transmission Date: 20171127
  Serious: Yes (Disabling)
  Sender: FDA-Public Use
  Company Number: US-ALLERGAN-1727193US

PATIENT
  Age: 64 Year
  Sex: Male

DRUGS (4)
  1. INSULIN [Concomitant]
     Active Substance: INSULIN NOS
     Indication: DIABETES MELLITUS
  2. REFRESH PLUS [Suspect]
     Active Substance: CARBOXYMETHYLCELLULOSE SODIUM
     Indication: DRY EYE
     Dosage: UNK
     Route: 047
     Dates: start: 2007, end: 201701
  3. REFRESH PLUS [Suspect]
     Active Substance: CARBOXYMETHYLCELLULOSE SODIUM
     Dosage: UNK
     Route: 047
     Dates: start: 201701
  4. NEUROTIN [Concomitant]
     Active Substance: GABAPENTIN
     Indication: BACK DISORDER
     Dosage: UNK, TID
     Route: 048

REACTIONS (2)
  - Fall [Recovered/Resolved]
  - Eye excision [Recovered/Resolved]

NARRATIVE: CASE EVENT DATE: 201701
